FAERS Safety Report 25084032 (Version 2)
Quarter: 2025Q1

REPORT INFORMATION
  Report Type: Spontaneous
  Country: MK (occurrence: MK)
  Receive Date: 20250317
  Receipt Date: 20250327
  Transmission Date: 20250408
  Serious: Yes (Death)
  Sender: TEVA
  Company Number: MK-TEVA-VS-3309721

PATIENT
  Age: 52 Year
  Sex: Female

DRUGS (4)
  1. PACLITAXEL [Suspect]
     Active Substance: PACLITAXEL
     Indication: Endometrial adenocarcinoma
     Route: 065
  2. BEVACIZUMAB [Suspect]
     Active Substance: BEVACIZUMAB
     Indication: Endometrial adenocarcinoma
     Route: 065
  3. CYCLOPHOSPHAMIDE [Suspect]
     Active Substance: CYCLOPHOSPHAMIDE
     Indication: Ovarian endometrioid carcinoma
     Route: 065
  4. CARBOPLATIN [Suspect]
     Active Substance: CARBOPLATIN
     Indication: Ovarian endometrioid carcinoma
     Route: 065

REACTIONS (1)
  - Drug ineffective [Fatal]
